FAERS Safety Report 7117925-9 (Version None)
Quarter: 2010Q4

REPORT INFORMATION
  Report Type: 
  Country: None (occurrence: None)
  Receive Date: 20101123
  Receipt Date: 20101101
  Transmission Date: 20110411
  Serious: Yes (Other)
  Sender: FDA-Public Use
  Company Number: JP-RANBAXY-2010RR-38980

PATIENT
  Age: 40 Year
  Sex: Male

DRUGS (8)
  1. LEVOFLOXACIN [Suspect]
     Indication: ANTIBIOTIC PROPHYLAXIS
     Dosage: 300 MG, QD
     Route: 065
     Dates: start: 20040511
  2. FLUCONAZOLE [Suspect]
     Indication: ANTIBIOTIC PROPHYLAXIS
     Dosage: 400 MG, QD
     Route: 065
     Dates: start: 20040511
  3. CO-TRIMOXAZOLE [Suspect]
     Indication: ANTIBIOTIC PROPHYLAXIS
     Dosage: 4 UNK, UNK
     Route: 065
     Dates: start: 20040511
  4. VANCOMYCIN [Suspect]
     Indication: ANTIBIOTIC PROPHYLAXIS
     Dosage: 2 G, QD
     Route: 065
     Dates: start: 20040511
  5. VANCOMYCIN [Suspect]
     Dosage: 1 G, QD
  6. VANCOMYCIN [Suspect]
     Dosage: 2 G, UNK
     Dates: start: 20040624
  7. VANCOMYCIN [Suspect]
     Dosage: 1 G, QD
     Dates: start: 20040628
  8. VANCOMYCIN [Suspect]
     Dosage: 400 MG, UNK

REACTIONS (5)
  - BACTERIAL DIARRHOEA [None]
  - BLOOD URINE PRESENT [None]
  - CLOSTRIDIUM TEST POSITIVE [None]
  - HAEMATOCHEZIA [None]
  - PYREXIA [None]
